FAERS Safety Report 12444958 (Version 1)
Quarter: 2016Q2

REPORT INFORMATION
  Report Type: Spontaneous
  Country: US (occurrence: US)
  Receive Date: 20160607
  Receipt Date: 20160607
  Transmission Date: 20160815
  Serious: No
  Sender: FDA-Public Use
  Company Number: US-GLAXOSMITHKLINE-US2016074418

PATIENT
  Age: 55 Year
  Sex: Female

DRUGS (7)
  1. ESTRADIOL. [Concomitant]
     Active Substance: ESTRADIOL
  2. NEXIUM [Concomitant]
     Active Substance: ESOMEPRAZOLE MAGNESIUM
  3. RANITIDINE. [Concomitant]
     Active Substance: RANITIDINE
  4. ANORO ELLIPTA [Suspect]
     Active Substance: UMECLIDINIUM BROMIDE\VILANTEROL TRIFENATATE
     Indication: LUNG NEOPLASM MALIGNANT
     Dosage: 1 PUFF(S), 1D
     Route: 055
     Dates: start: 20160512
  5. ATENOLOL. [Concomitant]
     Active Substance: ATENOLOL
  6. DEXILANT [Concomitant]
     Active Substance: DEXLANSOPRAZOLE
  7. ALBUTEROL. [Concomitant]
     Active Substance: ALBUTEROL

REACTIONS (5)
  - Drug dose omission [Unknown]
  - Device use error [Unknown]
  - Dyspnoea [Recovered/Resolved]
  - Product use issue [Unknown]
  - Medication error [Unknown]

NARRATIVE: CASE EVENT DATE: 20160524
